FAERS Safety Report 9215840 (Version 1)
Quarter: 2013Q2

REPORT INFORMATION
  Report Type: Spontaneous
  Country: US (occurrence: None)
  Receive Date: 20130404
  Receipt Date: 20130404
  Transmission Date: 20140414
  Serious: Yes (Death)
  Sender: FDA-Public Use
  Company Number: SYM-2013-02300

PATIENT
  Sex: 0

DRUGS (5)
  1. FLUOROURACIL (FLUOROURACIL) [Suspect]
     Indication: COLORECTAL CANCER METASTATIC
     Route: 040
  2. IRINOTECAN [Suspect]
     Indication: COLORECTAL CANCER METASTATIC
  3. LEUCOVORIN [Suspect]
     Indication: COLORECTAL CANCER METASTATIC
  4. PLACEBO (PLACEBO) [Suspect]
     Indication: COLORECTAL CANCER METASTATIC
     Dosage: EVERY OTHER WEEK, INTRAVENOUS (NOT OTHERWISE SPECIFIED)
     Route: 042
  5. UNSPECIFIED INGREDIENT [Suspect]
     Dosage: 10 MG/KG, EVERY OTHER WEEK, INTRAVENOUS (NOT OTHERWISE SPECIFIED)
     Route: 042

REACTIONS (1)
  - Death [None]
